FAERS Safety Report 8220159-8 (Version None)
Quarter: 2012Q1

REPORT INFORMATION
  Report Type: 
  Country: None (occurrence: None)
  Receive Date: 20120316
  Receipt Date: 20120229
  Transmission Date: 20120608
  Serious: Yes (Hospitalization, Other)
  Sender: FDA-Public Use
  Company Number: JPI-P-020012

PATIENT
  Age: 48 Year
  Sex: Male
  Weight: 89.8122 kg

DRUGS (13)
  1. CARBAMAZEPINE [Concomitant]
  2. PRAMIPEXOLE DIHYDROCHLORIDE [Concomitant]
  3. OMEPRAZOLE [Concomitant]
  4. FAMCICLOVIR [Concomitant]
  5. SIMVASTATIN [Concomitant]
  6. BUPROPION HCL [Concomitant]
  7. PERPHENAZINE [Concomitant]
  8. HYDROCHLOROTHIAZIDE [Concomitant]
  9. LORATADINE [Concomitant]
  10. POTASSIUM CHLORIDE [Concomitant]
  11. CLONAZEPAM [Concomitant]
  12. XYREM [Suspect]
     Indication: INSOMNIA
     Dosage: ORAL 9 GM (4.5 GM, 2 IN 1 D), ORAL
     Route: 048
     Dates: start: 20110803
  13. LOSARTAN POTASSIUM [Concomitant]

REACTIONS (11)
  - HALLUCINATION [None]
  - VOMITING [None]
  - SUICIDAL IDEATION [None]
  - HEADACHE [None]
  - DRY SKIN [None]
  - MYOCARDIAL INFARCTION [None]
  - AGGRESSION [None]
  - SOMNAMBULISM [None]
  - SOMNOLENCE [None]
  - GRUNTING [None]
  - SEDATION [None]
